FAERS Safety Report 21530304 (Version 1)
Quarter: 2022Q4

REPORT INFORMATION
  Report Type: Spontaneous
  Country: CN (occurrence: CN)
  Receive Date: 20221031
  Receipt Date: 20221031
  Transmission Date: 20230113
  Serious: Yes (Other)
  Sender: FDA-Public Use
  Company Number: CN-BAYER-2022A148234

PATIENT
  Age: 68 Year
  Sex: Male

DRUGS (2)
  1. AVELOX [Suspect]
     Active Substance: MOXIFLOXACIN HYDROCHLORIDE
     Indication: Anti-infective therapy
     Dosage: 0.4 G, QD
     Route: 041
     Dates: start: 20220922, end: 20220926
  2. CILASTATIN SODIUM\IMIPENEM [Suspect]
     Active Substance: CILASTATIN SODIUM\IMIPENEM
     Indication: Anti-infective therapy
     Dosage: 2 G, TID
     Route: 041
     Dates: start: 20220922, end: 20220927

REACTIONS (8)
  - Epilepsy [Recovered/Resolved]
  - Cerebral infarction [None]
  - Altered state of consciousness [Recovered/Resolved]
  - Trismus [Recovered/Resolved]
  - Gaze palsy [Recovered/Resolved]
  - Aphasia [Recovered/Resolved]
  - Unresponsive to stimuli [Recovered/Resolved]
  - Patient uncooperative [Recovered/Resolved]

NARRATIVE: CASE EVENT DATE: 20220925
